FAERS Safety Report 19272912 (Version 2)
Quarter: 2021Q2

REPORT INFORMATION
  Report Type: Spontaneous
  Country: GB (occurrence: GB)
  Receive Date: 20210518
  Receipt Date: 20210622
  Transmission Date: 20210717
  Serious: Yes (Death, Life-Threatening, Hospitalization, Other)
  Sender: FDA-Public Use
  Company Number: GB-BAXTER-2021BAX001892

PATIENT
  Age: 75 Year
  Sex: Female

DRUGS (28)
  1. ARAVA [Suspect]
     Active Substance: LEFLUNOMIDE
     Dosage: RESUMED AFTER 2 DAYS OF SURGERY
     Route: 065
  2. BUDESONIDE. [Suspect]
     Active Substance: BUDESONIDE
     Indication: ASTHMA
     Dosage: UNK; ;
     Route: 055
  3. FENTANYL. [Suspect]
     Active Substance: FENTANYL
     Indication: INDUCTION OF ANAESTHESIA
     Dosage: UNK; ;
     Route: 042
     Dates: start: 200203, end: 200203
  4. AMOXICILLIN. [Suspect]
     Active Substance: AMOXICILLIN
     Indication: PRODUCT USED FOR UNKNOWN INDICATION
     Route: 065
  5. DIPRIVAN [Concomitant]
     Active Substance: PROPOFOL
     Dosage: UNK
     Route: 065
  6. ATORVASTATIN [Suspect]
     Active Substance: ATORVASTATIN
     Indication: HYPERCHOLESTEROLAEMIA
     Dosage: UNK; ;
     Route: 065
     Dates: start: 1999
  7. QUININE SULFATE. [Suspect]
     Active Substance: QUININE SULFATE
     Indication: MUSCLE SPASMS
     Dosage: UNK; ;?TABLET
     Route: 065
  8. ARAVA [Suspect]
     Active Substance: LEFLUNOMIDE
     Indication: RHEUMATOID ARTHRITIS
     Dosage: 20 MG;
     Route: 065
     Dates: start: 200203, end: 200203
  9. ATORVASTATIN [Suspect]
     Active Substance: ATORVASTATIN
     Dosage: RESUMED AFTER 2 DAYS OF SURGERY
     Route: 065
  10. COCODAMOL [Suspect]
     Active Substance: ACETAMINOPHEN\CODEINE PHOSPHATE
     Indication: RHEUMATOID ARTHRITIS
     Dosage: UNK; ;
     Route: 065
  11. LISINOPRIL. [Suspect]
     Active Substance: LISINOPRIL
     Indication: HYPERTENSION
     Dosage: UNK; ;?TABLET
     Route: 048
     Dates: start: 200203
  12. LANSOPRAZOLE. [Suspect]
     Active Substance: LANSOPRAZOLE
     Dosage: RESUMED AFTER 2 DAYS OF SURGERY
     Route: 065
  13. DILTIAZEM. [Concomitant]
     Active Substance: DILTIAZEM
     Route: 065
  14. PROPOFOL. [Concomitant]
     Active Substance: PROPOFOL
     Dosage: UNK
     Route: 065
  15. ASPIRINE [Suspect]
     Active Substance: ASPIRIN
     Dosage: RESUMED AFTER 2 DAYS OF SURGERY
     Route: 065
  16. BUDESONIDE. [Suspect]
     Active Substance: BUDESONIDE
     Dosage: RESUMED AFTER 2 DAYS OF SURGERY
     Route: 055
  17. LANSOPRAZOLE. [Suspect]
     Active Substance: LANSOPRAZOLE
     Indication: DUODENAL ULCER
     Route: 065
     Dates: start: 200203
  18. CLARITHROMYCIN. [Suspect]
     Active Substance: CLARITHROMYCIN
     Indication: PRODUCT USED FOR UNKNOWN INDICATION
     Route: 065
  19. DIPRIVAN [Concomitant]
     Active Substance: PROPOFOL
     Dosage: UNK
     Route: 065
  20. QUININE SULFATE. [Suspect]
     Active Substance: QUININE SULFATE
     Dosage: RESUMED WITHIN 2 DAYS AFTER SURGERY?TABLET
     Route: 065
  21. PROPOFOL. [Concomitant]
     Active Substance: PROPOFOL
     Indication: ANAESTHESIA PROCEDURE
     Dosage: UNK; ;
     Route: 042
  22. MIDAZOLAM 5MG/ML SOLUTION FOR INJECTION/INFUSION [Suspect]
     Active Substance: MIDAZOLAM
     Indication: MUSCLE SPASMS
     Dosage: UNK; ;
     Route: 065
     Dates: start: 200203, end: 200203
  23. GLYCERYL TRINITRATE [Suspect]
     Active Substance: NITROGLYCERIN
     Indication: ANGINA PECTORIS
     Dosage: UNK; ;
     Route: 048
     Dates: start: 200203, end: 200203
  24. LISINOPRIL. [Suspect]
     Active Substance: LISINOPRIL
     Dosage: RESUMED ON DAY 5?TABLET
     Route: 048
  25. PANCURONIUM BROMIDE. [Suspect]
     Active Substance: PANCURONIUM BROMIDE
     Indication: MUSCLE SPASMS
     Dosage: UNK; ;
     Route: 065
     Dates: start: 200203
  26. DILTIAZEM. [Concomitant]
     Active Substance: DILTIAZEM
     Indication: HYPERTENSION
     Dosage: UNK; ;
     Route: 065
  27. DIPRIVAN [Concomitant]
     Active Substance: PROPOFOL
     Indication: ANAESTHESIA PROCEDURE
     Dosage: UNK; ;
     Route: 042
  28. ASPIRINE [Suspect]
     Active Substance: ASPIRIN
     Indication: ANGINA PECTORIS
     Dosage: UNK; ;
     Route: 065
     Dates: start: 200203

REACTIONS (16)
  - Gastrointestinal haemorrhage [Fatal]
  - Hepatocellular injury [Fatal]
  - Muscle relaxant therapy [Fatal]
  - Post procedural haemorrhage [Fatal]
  - Coagulopathy [Fatal]
  - Hepatorenal syndrome [Fatal]
  - Hepatic failure [Fatal]
  - Hypovolaemia [Fatal]
  - Labile blood pressure [Fatal]
  - Haematemesis [Fatal]
  - Gastritis haemorrhagic [Fatal]
  - Hepatic ischaemia [Fatal]
  - Renal impairment [Fatal]
  - Renal failure [Fatal]
  - Coronary artery bypass [Fatal]
  - Ulcer [Fatal]
